FAERS Safety Report 8246444-1 (Version None)
Quarter: 2012Q1

REPORT INFORMATION
  Report Type: 
  Country: None (occurrence: None)
  Receive Date: 20120316
  Receipt Date: 20110805
  Transmission Date: 20120608
  Serious: No
  Sender: FDA-Public Use
  Company Number: PHEH2011US00960

PATIENT
  Age: 57 Year
  Sex: Male

DRUGS (1)
  1. ILARIS [Suspect]
     Dosage: 150 MG EVERY 8 WEEKS, SUBCUTANEOUS
     Route: 058
     Dates: start: 20110802

REACTIONS (2)
  - HEART RATE INCREASED [None]
  - ANXIETY [None]
